FAERS Safety Report 12346492 (Version 1)
Quarter: 2016Q2

REPORT INFORMATION
  Report Type: Spontaneous
  Country: JP (occurrence: JP)
  Receive Date: 20160426
  Receipt Date: 20160426
  Transmission Date: 20160815
  Serious: Yes (Death)
  Sender: FDA-Public Use
  Company Number: JP-MALLINCKRODT-T201601340

PATIENT
  Age: 68 Year
  Sex: Male

DRUGS (14)
  1. OXYCONTIN [Concomitant]
     Active Substance: OXYCODONE HYDROCHLORIDE
     Dosage: 80 MG
     Route: 048
     Dates: start: 20160120, end: 20160130
  2. TEGRETOL [Concomitant]
     Active Substance: CARBAMAZEPINE
     Indication: ANALGESIC THERAPY
     Dosage: 200 MG
     Route: 048
     Dates: end: 20160130
  3. JZOLOFT [Concomitant]
     Active Substance: SERTRALINE HYDROCHLORIDE
     Indication: ANALGESIC THERAPY
     Dosage: 50 MG
     Route: 048
     Dates: end: 20160130
  4. OXYCONTIN [Concomitant]
     Active Substance: OXYCODONE HYDROCHLORIDE
     Dosage: 160 MG
     Route: 048
     Dates: start: 20160106, end: 20160119
  5. KETALAR [Concomitant]
     Active Substance: KETAMINE HYDROCHLORIDE
     Indication: ANALGESIC THERAPY
     Dosage: 50 MG
     Route: 048
     Dates: start: 20151209, end: 20160105
  6. KETALAR [Concomitant]
     Active Substance: KETAMINE HYDROCHLORIDE
     Dosage: 100 MG
     Route: 048
     Dates: start: 20160120, end: 20160130
  7. METHADONE [Suspect]
     Active Substance: METHADONE HYDROCHLORIDE
     Dosage: 20 MG, 40 MG DAILY DOSE
     Route: 048
     Dates: start: 20160120, end: 20160130
  8. KETALAR [Concomitant]
     Active Substance: KETAMINE HYDROCHLORIDE
     Dosage: 75 MG
     Route: 048
     Dates: start: 20160106, end: 20160119
  9. METHADONE [Suspect]
     Active Substance: METHADONE HYDROCHLORIDE
     Dosage: 10 MG, 20 MG DAILY DOSE
     Route: 048
     Dates: start: 20160106, end: 20160119
  10. OXYCONTIN [Concomitant]
     Active Substance: OXYCODONE HYDROCHLORIDE
     Indication: ANALGESIC THERAPY
     Dosage: 240 MG
     Route: 048
     Dates: end: 20160105
  11. CALONAL [Concomitant]
     Active Substance: ACETAMINOPHEN
     Indication: ANALGESIC THERAPY
     Dosage: 240 MG
     Route: 048
     Dates: end: 20160130
  12. OXYNORM [Concomitant]
     Active Substance: OXYCODONE HYDROCHLORIDE
     Indication: ANALGESIC THERAPY
     Dosage: 20-30 MG, PRN
     Route: 048
     Dates: start: 20151216
  13. METHADONE [Suspect]
     Active Substance: METHADONE HYDROCHLORIDE
     Indication: CANCER PAIN
     Dosage: 5 MG, 10 MG DAILY DOSE
     Route: 048
     Dates: start: 20151223, end: 20160105
  14. LYRICA [Concomitant]
     Active Substance: PREGABALIN
     Indication: ANALGESIC THERAPY
     Dosage: 200 MG
     Route: 048
     Dates: end: 20160130

REACTIONS (1)
  - Pancoast^s tumour [Fatal]

NARRATIVE: CASE EVENT DATE: 20160201
